FAERS Safety Report 7044854-1 (Version None)
Quarter: 2010Q4

REPORT INFORMATION
  Report Type: 
  Country: None (occurrence: None)
  Receive Date: 20101014
  Receipt Date: 20101004
  Transmission Date: 20110411
  Serious: Yes (Other)
  Sender: FDA-Public Use
  Company Number: US-ALEXION-A201001230

PATIENT
  Sex: Male

DRUGS (1)
  1. SOLIRIS [Suspect]
     Indication: PAROXYSMAL NOCTURNAL HAEMOGLOBINURIA
     Dosage: 900 MG, UNK
     Route: 042

REACTIONS (4)
  - DEVICE RELATED INFECTION [None]
  - DRUG DOSE OMISSION [None]
  - POOR VENOUS ACCESS [None]
  - STAPHYLOCOCCAL INFECTION [None]
